FAERS Safety Report 23387540 (Version 3)
Quarter: 2024Q1

REPORT INFORMATION
  Report Type: Report from Study
  Country: DE (occurrence: DE)
  Receive Date: 20240110
  Receipt Date: 20240228
  Transmission Date: 20240410
  Serious: Yes (Other)
  Sender: FDA-Public Use
  Company Number: DE-PFIZER INC-PV202400001802

PATIENT
  Age: 44 Year
  Sex: Male

DRUGS (1)
  1. CIBINQO [Suspect]
     Active Substance: ABROCITINIB
     Indication: Dermatitis atopic
     Dosage: 200 MG, 1X/DAY
     Route: 048
     Dates: start: 20230202

REACTIONS (1)
  - Pyelonephritis [Recovered/Resolved]

NARRATIVE: CASE EVENT DATE: 20231009
